FAERS Safety Report 10027644 (Version 1)
Quarter: 2014Q1

REPORT INFORMATION
  Report Type: Report from Study
  Country: US (occurrence: US)
  Receive Date: 20140321
  Receipt Date: 20140321
  Transmission Date: 20141002
  Serious: Yes (Other)
  Sender: FDA-Public Use
  Company Number: US-ROCHE-1367562

PATIENT
  Age: 73 Year
  Sex: Female
  Weight: 105.78 kg

DRUGS (9)
  1. LUCENTIS [Suspect]
     Indication: VASCULAR RUPTURE
     Route: 050
     Dates: start: 20131007
  2. LUCENTIS [Suspect]
     Route: 050
     Dates: start: 20131216
  3. PREDNISONE [Suspect]
     Indication: CHRONIC OBSTRUCTIVE PULMONARY DISEASE
     Route: 048
  4. PREDNISONE [Suspect]
     Route: 048
     Dates: start: 20140316
  5. SYMBICORT [Concomitant]
     Dosage: 2 PUFFS, TWICE PER DAY 160/45MCG
     Route: 065
  6. SPIRIVA [Concomitant]
     Dosage: 1 PUFF
     Route: 065
  7. SULFAMETHOXAZOLE [Concomitant]
     Route: 048
     Dates: start: 20140316
  8. PROAIR (UNITED STATES) [Concomitant]
     Indication: CHRONIC OBSTRUCTIVE PULMONARY DISEASE
     Dosage: AS NEEDED 5-6 TIMES PER DAY
     Route: 055
  9. OXYGEN [Concomitant]
     Dosage: AT NIGHT 2 LITERS, NASAL CANULLA
     Route: 045
     Dates: start: 201311

REACTIONS (5)
  - Lung infection [Not Recovered/Not Resolved]
  - Pneumonia [Not Recovered/Not Resolved]
  - Chronic obstructive pulmonary disease [Not Recovered/Not Resolved]
  - Pleurisy [Recovered/Resolved]
  - Weight increased [Unknown]
